FAERS Safety Report 9724797 (Version 1)
Quarter: 2013Q4

REPORT INFORMATION
  Report Type: Spontaneous
  Country: US (occurrence: US)
  Receive Date: 20131202
  Receipt Date: 20131202
  Transmission Date: 20140711
  Serious: No
  Sender: FDA-Public Use
  Company Number: US-PFIZER INC-2013341093

PATIENT
  Sex: Female

DRUGS (1)
  1. DETROL LA [Suspect]
     Indication: HYPERTONIC BLADDER
     Dosage: 2 MG, UNK

REACTIONS (4)
  - Tongue injury [Unknown]
  - Tongue disorder [Unknown]
  - Tongue discolouration [Unknown]
  - Swollen tongue [Unknown]
